FAERS Safety Report 8889296 (Version 2)
Quarter: 2012Q4

REPORT INFORMATION
  Report Type: 
  Country: JP (occurrence: JP)
  Receive Date: 20121106
  Receipt Date: 20121123
  Transmission Date: 20130627
  Serious: Yes (Other)
  Sender: FDA-Public Use
  Company Number: JP-PFIZER INC-2012270974

PATIENT
  Age: 71 Year
  Sex: Female

DRUGS (5)
  1. NORVASC [Suspect]
     Indication: HYPERTENSION
     Dosage: UNK
     Dates: start: 20120925, end: 20121001
  2. TANATRIL [Concomitant]
     Dosage: 5 mg, 2x/day
     Route: 048
     Dates: end: 201209
  3. TANATRIL [Concomitant]
     Dosage: 5 mg, 1x/day
     Route: 048
     Dates: start: 20120925
  4. LENDORMIN [Concomitant]
  5. ALINAMIN [Concomitant]

REACTIONS (1)
  - Deafness unilateral [Recovering/Resolving]
